FAERS Safety Report 13457963 (Version 2)
Quarter: 2017Q3

REPORT INFORMATION
  Report Type: Report from Study
  Country: CA (occurrence: CA)
  Receive Date: 20170419
  Receipt Date: 20170731
  Transmission Date: 20171127
  Serious: Yes (Death, Hospitalization, Other)
  Sender: FDA-Public Use
  Company Number: CA-INCYTE CORPORATION-2017IN002334

PATIENT

DRUGS (2)
  1. JAKAVI [Suspect]
     Active Substance: RUXOLITINIB
     Dosage: 10 MG, BID
     Route: 048
     Dates: start: 20170322
  2. JAKAVI [Suspect]
     Active Substance: RUXOLITINIB
     Indication: MYELOFIBROSIS
     Dosage: 5 MG, BID
     Route: 048
     Dates: start: 20170113

REACTIONS (6)
  - Death [Fatal]
  - Ulcer haemorrhage [Unknown]
  - Increased appetite [Unknown]
  - Constipation [Unknown]
  - Haemorrhoids [Unknown]
  - Weight decreased [Unknown]

NARRATIVE: CASE EVENT DATE: 20170315
